FAERS Safety Report 25991047 (Version 2)
Quarter: 2025Q4

REPORT INFORMATION
  Report Type: Spontaneous
  Country: RS (occurrence: RS)
  Receive Date: 20251103
  Receipt Date: 20251222
  Transmission Date: 20260117
  Serious: Yes (Hospitalization, Other)
  Sender: NOVO NORDISK
  Company Number: RS-NOVOPROD-1549827

PATIENT
  Age: 54 Year
  Sex: Female

DRUGS (3)
  1. TRESIBA [Suspect]
     Active Substance: INSULIN DEGLUDEC
     Indication: Type 1 diabetes mellitus
     Dosage: 14-16 IU, TAKING DURING THE DINNER
     Route: 058
  2. TRESIBA [Suspect]
     Active Substance: INSULIN DEGLUDEC
     Dosage: UNK (NEW PEN)
     Route: 058
  3. NOVORAPID [Concomitant]
     Active Substance: INSULIN ASPART
     Indication: Type 1 diabetes mellitus
     Dosage: 3-5 IU, 3-5 IU, 3-5 IU, AFTER MEALTIMES, TID
     Route: 058

REACTIONS (5)
  - Acute kidney injury [Unknown]
  - Peripheral artery stenosis [Unknown]
  - Hyperglycaemia [Recovering/Resolving]
  - Device malfunction [Unknown]
  - Device failure [Unknown]

NARRATIVE: CASE EVENT DATE: 20250810
